FAERS Safety Report 7741326-3 (Version None)
Quarter: 2011Q3

REPORT INFORMATION
  Report Type: 
  Country: None (occurrence: None)
  Receive Date: 20110909
  Receipt Date: 20110906
  Transmission Date: 20111222
  Serious: Yes (Hospitalization, Other)
  Sender: FDA-Public Use
  Company Number: US-BAYER-2011-075223

PATIENT
  Age: 44 Year
  Sex: Female

DRUGS (4)
  1. VICOPROFEN [Concomitant]
  2. BETASERON [Suspect]
     Indication: RELAPSING-REMITTING MULTIPLE SCLEROSIS
     Dosage: 8 MIU, QOD
     Route: 058
     Dates: start: 20090126, end: 20110814
  3. ESTRIOL [Concomitant]
     Dosage: 30 DAYS EVERY OTHER MONTH
  4. LASIX [Concomitant]
     Dosage: 20 MG, QD
     Dates: start: 20110813

REACTIONS (9)
  - OVARIAN MASS [None]
  - HEPATIC MASS [None]
  - ABDOMINAL DISTENSION [None]
  - ABDOMINAL MASS [None]
  - MALAISE [None]
  - PULMONARY OEDEMA [None]
  - ANTIBODY TEST ABNORMAL [None]
  - LUNG DISORDER [None]
  - DYSPNOEA [None]
